FAERS Safety Report 24206244 (Version 1)
Quarter: 2024Q3

REPORT INFORMATION
  Report Type: Spontaneous
  Country: US (occurrence: None)
  Receive Date: 20240813
  Receipt Date: 20240813
  Transmission Date: 20241016
  Serious: Yes (Hospitalization)
  Sender: Public
  Company Number: None

PATIENT
  Sex: Male

DRUGS (1)
  1. XOLAIR [Suspect]
     Active Substance: OMALIZUMAB
     Indication: Idiopathic urticaria
     Dosage: OTHER QUANTITY : 1 SYRINGE UNDER THE SKIN ;?FREQUENCY : MONTHLY;?
     Route: 058
     Dates: start: 20230629

REACTIONS (3)
  - Head injury [None]
  - Product dose omission in error [None]
  - Product storage error [None]
